FAERS Safety Report 8001869-4 (Version None)
Quarter: 2011Q4

REPORT INFORMATION
  Report Type: 
  Country: None (occurrence: None)
  Receive Date: 20111123
  Receipt Date: 20110811
  Transmission Date: 20120403
  Serious: No
  Sender: FDA-Public Use
  Company Number: 336287

PATIENT
  Age: 61 Year
  Sex: Female

DRUGS (1)
  1. VICTOZA [Suspect]
     Indication: TYPE 2 DIABETES MELLITUS
     Dosage: 0.6, SUBCUTANEOUS
     Route: 058
     Dates: start: 20110714

REACTIONS (4)
  - HYPERSOMNIA [None]
  - DIARRHOEA [None]
  - NAUSEA [None]
  - ERUCTATION [None]
